FAERS Safety Report 5877218-4 (Version None)
Quarter: 2008Q3

REPORT INFORMATION
  Report Type: 
  Country: None (occurrence: None)
  Receive Date: 20080910
  Receipt Date: 20080829
  Transmission Date: 20090109
  Serious: Yes (Disabling, Other)
  Sender: FDA-Public Use
  Company Number: DK-PFIZER INC-2008068205

PATIENT
  Sex: Female
  Weight: 57 kg

DRUGS (4)
  1. LYRICA [Suspect]
     Indication: ANXIETY
     Dosage: DAILY DOSE:375MG
     Route: 048
     Dates: start: 20070801
  2. CIPRALEX [Suspect]
     Indication: ANXIETY
     Route: 048
     Dates: start: 20070701
  3. ZYPREXA [Suspect]
     Indication: DEPRESSION
     Route: 048
     Dates: start: 20070701
  4. TRUXAL [Suspect]
     Indication: STRESS
     Dosage: FREQ:THREE TIMES DAILY
     Route: 048
     Dates: start: 20070518, end: 20080706

REACTIONS (1)
  - TOOTH LOSS [None]
